FAERS Safety Report 12088641 (Version 2)
Quarter: 2020Q2

REPORT INFORMATION
  Report Type: Spontaneous
  Country: US (occurrence: US)
  Receive Date: 20160218
  Receipt Date: 20200402
  Transmission Date: 20200713
  Serious: Yes (Death, Other)
  Sender: FDA-Public Use
  Company Number: US-009507513-1602USA008226

PATIENT
  Sex: Male

DRUGS (3)
  1. JANUMET [Suspect]
     Active Substance: METFORMIN HYDROCHLORIDE\SITAGLIPTIN PHOSPHATE
     Dosage: 50-500 MG
     Route: 048
     Dates: start: 20090925, end: 201005
  2. BYETTA [Suspect]
     Active Substance: EXENATIDE
     Dosage: 250 ^MC^
     Dates: start: 20070129, end: 200704
  3. VICTOZA [Suspect]
     Active Substance: LIRAGLUTIDE
     Dosage: 18MG/3ML
     Dates: start: 20100511, end: 201006

REACTIONS (8)
  - Gastritis [Unknown]
  - Cholelithiasis [Unknown]
  - Penile prosthesis insertion [Unknown]
  - Duodenitis [Unknown]
  - Bile duct stenosis [Unknown]
  - Pancreatic carcinoma [Fatal]
  - Jaundice cholestatic [Unknown]
  - Pneumobilia [Unknown]

NARRATIVE: CASE EVENT DATE: 20130319
